FAERS Safety Report 16959242 (Version 1)
Quarter: 2019Q4

REPORT INFORMATION
  Report Type: Spontaneous
  Country: FR (occurrence: FR)
  Receive Date: 20191024
  Receipt Date: 20191024
  Transmission Date: 20200122
  Serious: Yes (Other)
  Sender: FDA-Public Use
  Company Number: FR-ASTRAZENECA-2019SF50166

PATIENT

DRUGS (1)
  1. TAGRISSO [Suspect]
     Active Substance: OSIMERTINIB
     Indication: NON-SMALL CELL LUNG CANCER
     Dosage: UNSPECIFIED DOSAGE
     Route: 048

REACTIONS (3)
  - Metastases to adrenals [Unknown]
  - Small cell lung cancer [Unknown]
  - Malignant neoplasm progression [Unknown]
